FAERS Safety Report 4318499-8 (Version None)
Quarter: 2004Q1

REPORT INFORMATION
  Report Type: 
  Country: None (occurrence: None)
  Receive Date: 20040316
  Receipt Date: 20040316
  Transmission Date: 20041129
  Serious: Yes (Life-Threatening, Disabling)
  Sender: FDA-Public Use
  Company Number: None

PATIENT
  Sex: Male
  Weight: 63.5036 kg

DRUGS (6)
  1. ZOCOR [Suspect]
     Indication: BLOOD CHOLESTEROL INCREASED
     Dosage: 1 PER DAY
  2. TIAZAC (ZYONE) [Concomitant]
  3. VALCYCLOVIR [Concomitant]
  4. ASPIRIN [Concomitant]
  5. DIAZIDE [Concomitant]
  6. PRED FORTE [Concomitant]

REACTIONS (2)
  - DIFFICULTY IN WALKING [None]
  - RENAL IMPAIRMENT [None]
